FAERS Safety Report 4560685-6 (Version None)
Quarter: 2005Q1

REPORT INFORMATION
  Report Type: 
  Country: None (occurrence: None)
  Receive Date: 20050121
  Receipt Date: 20050112
  Transmission Date: 20050727
  Serious: Yes (Other)
  Sender: FDA-Public Use
  Company Number: 2005-01-1112

PATIENT
  Age: 51 Year
  Sex: Female

DRUGS (3)
  1. GARASONE [Suspect]
     Dosage: 3 DROPS QID OTIC
     Route: 001
  2. ZITHROMAX [Suspect]
     Dosage: 2 DOSES QD ORAL
     Route: 048
  3. ASPIRIN [Concomitant]

REACTIONS (2)
  - HEARING IMPAIRED [None]
  - PARAESTHESIA [None]
